FAERS Safety Report 4302676-6 (Version None)
Quarter: 2004Q1

REPORT INFORMATION
  Report Type: 
  Country: None (occurrence: None)
  Receive Date: 20040220
  Receipt Date: 20040205
  Transmission Date: 20041129
  Serious: Yes (Hospitalization, Other)
  Sender: FDA-Public Use
  Company Number: 2004-BP-00883NB

PATIENT
  Age: 38 Year
  Sex: Male

DRUGS (6)
  1. VIRAMUNE [Suspect]
     Indication: HIV INFECTION
     Dosage: 200 MG (200 MG); PO
     Route: 048
     Dates: start: 20020320
  2. COMBIVIR [Suspect]
     Indication: HIV INFECTION
     Dosage: 2 ANZ (NR); PO
     Route: 048
     Dates: start: 20020320
  3. AMOBAN       (ZOPICLONE) [Concomitant]
  4. ALLEGRA (FEXOFENADINE HYDROCHLORIDE) (TA) [Concomitant]
  5. BENAMBAX (PENTAMIDINE) (AM) [Concomitant]
  6. WYPAX (LORAZEPAM) (TA) [Concomitant]

REACTIONS (8)
  - ANAEMIA [None]
  - CHOKING [None]
  - DRUG INTERACTION [None]
  - FATIGUE [None]
  - LACTIC ACIDOSIS [None]
  - MALAISE [None]
  - PALPITATIONS [None]
  - RHINITIS ALLERGIC [None]
